FAERS Safety Report 7619029-5 (Version None)
Quarter: 2011Q3

REPORT INFORMATION
  Report Type: 
  Country: None (occurrence: None)
  Receive Date: 20110718
  Receipt Date: 20100519
  Transmission Date: 20111222
  Serious: Yes (Life-Threatening, Hospitalization, Other)
  Sender: FDA-Public Use
  Company Number: FR-PFIZER INC-2004105784

PATIENT
  Age: 55 Year
  Sex: Female

DRUGS (8)
  1. XANAX [Suspect]
     Route: 048
  2. ATARAX [Suspect]
     Dosage: 25 MG, 2X/DAY
     Route: 048
  3. ZYRTEC [Suspect]
     Indication: PRURITUS
     Dosage: 10 MG, 3X/DAY
     Route: 048
     Dates: start: 20031023, end: 20031105
  4. ZOCOR [Suspect]
     Dosage: 1 DOSAGE FORM
     Route: 048
  5. ZYRTEC [Suspect]
     Dosage: 10 MG, 1X/DAY
  6. STABLON [Suspect]
     Dosage: 12.5 MG, 2X/DAY
     Route: 048
  7. ZYRTEC [Suspect]
     Dosage: 10 MG, 2X/DAY
  8. MEDIATOR [Suspect]
     Dosage: 150 MG, 2X/DAY
     Route: 048

REACTIONS (8)
  - LOSS OF CONSCIOUSNESS [None]
  - HYPOKALAEMIA [None]
  - OVERDOSE [None]
  - TORSADE DE POINTES [None]
  - VENTRICULAR FLUTTER [None]
  - CARDIAC ARREST [None]
  - ELECTROCARDIOGRAM QT PROLONGED [None]
  - VENTRICULAR ARRHYTHMIA [None]
